FAERS Safety Report 12380404 (Version 3)
Quarter: 2017Q1

REPORT INFORMATION
  Report Type: Spontaneous
  Country: US (occurrence: US)
  Receive Date: 20160518
  Receipt Date: 20170105
  Transmission Date: 20170428
  Serious: No
  Sender: FDA-Public Use
  Company Number: US-PFIZER INC-2016238315

PATIENT
  Age: 67 Year
  Sex: Male
  Weight: 122.4 kg

DRUGS (26)
  1. SUTENT [Suspect]
     Active Substance: SUNITINIB MALATE
     Indication: METASTATIC RENAL CELL CARCINOMA
     Dosage: 50 MG, CYCLIC (4 WEEKS ON AND 2 WEEKS OFF)
     Route: 048
     Dates: start: 20151223
  2. HYDROCODONE-ACETAMINOPHEN [Concomitant]
     Active Substance: ACETAMINOPHEN\HYDROCODONE
     Indication: PAIN
     Dosage: 1 DF, AS NEEDED (HYDROCODONE 10 MG -ACETAMINOPHEN 325 MG) (EVERY 6 HOURS)
     Route: 048
     Dates: start: 20160420
  3. SUTENT [Suspect]
     Active Substance: SUNITINIB MALATE
     Dosage: 50 MG, CYCLIC (2 WEEKS ON/1 WEEK OFF)
     Route: 048
     Dates: start: 20160427
  4. ALLOPURINOL. [Concomitant]
     Active Substance: ALLOPURINOL
     Dosage: 300 MG, DAILY
     Route: 048
     Dates: start: 20150717
  5. FOLIC ACID. [Concomitant]
     Active Substance: FOLIC ACID
     Dosage: 20 MG, UNK
     Route: 048
  6. COUMADIN [Concomitant]
     Active Substance: WARFARIN SODIUM
     Dosage: 5 MG, DAILY
     Route: 048
     Dates: start: 20160414
  7. VITAMIN C [Concomitant]
     Active Substance: ASCORBIC ACID
     Dosage: 1000 MG, 2X/DAY
     Route: 048
  8. LOVENOX [Concomitant]
     Active Substance: ENOXAPARIN SODIUM
     Dosage: 0.8 ML / 120 MG, 2X/DAY
     Route: 058
     Dates: start: 20160426
  9. ZOFRAN [Concomitant]
     Active Substance: ONDANSETRON HYDROCHLORIDE
     Indication: NAUSEA
     Dosage: 8 MG, AS NEEDED (EVERY 8 HOURS)
     Route: 048
     Dates: start: 20151203
  10. DIPHENOXYLATE - ATROPINE [Concomitant]
     Indication: DIARRHOEA
     Dosage: 1 DF, AS NEEDED (DIPHENOXYLATE 2.5 MG - ATROPINE 0.25 MG; 4 TIMES DAILY)
     Route: 048
     Dates: start: 20160303
  11. GLUCOSAMINE CHONDR 1500 COMPLEX [Concomitant]
     Dosage: 4 DF, UNK
     Route: 048
  12. LISINOPRIL. [Concomitant]
     Active Substance: LISINOPRIL
     Dosage: 20 MG, DAILY
     Route: 048
     Dates: start: 20151020
  13. TRAMADOL HCL [Concomitant]
     Active Substance: TRAMADOL HYDROCHLORIDE
     Indication: PAIN
     Dosage: 50 MG, AS NEEDED (EVERY 6 HOURS)
     Route: 048
     Dates: start: 20150717
  14. SYMBICORT [Concomitant]
     Active Substance: BUDESONIDE\FORMOTEROL FUMARATE DIHYDRATE
     Dosage: UNK, 2X/DAY (BUDESONIDE 160 MG - FORMOTEROL FUMARATE 4.5 MG; INHALE 2 PUFFS INTO THE LUNGS)
     Route: 055
     Dates: start: 20151109
  15. SPIRIVA [Concomitant]
     Active Substance: TIOTROPIUM BROMIDE MONOHYDRATE
     Dosage: 18 UG, DAILY (INHALE 1 CAPSULE INTO THE LUNGS DAILY)
     Route: 055
     Dates: start: 20151109
  16. TIZANIDINE HCL [Concomitant]
     Active Substance: TIZANIDINE HYDROCHLORIDE
     Indication: MUSCLE SPASMS
     Dosage: 4 MG, AS NEEDED (EVERY 8 HOURS)
     Route: 048
     Dates: start: 20150717
  17. ALBUTEROL. [Concomitant]
     Active Substance: ALBUTEROL
     Dosage: UNK
  18. LEVOTHYROXINE SODIUM. [Concomitant]
     Active Substance: LEVOTHYROXINE SODIUM
     Dosage: 150 UG, DAILY
     Route: 048
     Dates: start: 20150717
  19. CENTRUM SILVER ADULTS 50+ [Concomitant]
     Active Substance: MINERALS\VITAMINS
     Dosage: 1 DF, DAILY
     Route: 048
  20. TENORMIN [Concomitant]
     Active Substance: ATENOLOL
     Dosage: 50 MG, DAILY
     Route: 048
     Dates: start: 20160218
  21. GABAPENTIN. [Concomitant]
     Active Substance: GABAPENTIN
     Dosage: 100 MG, 1X/DAY (EVERY NIGHT)
     Route: 048
     Dates: start: 20151110
  22. PROAIR HFA [Concomitant]
     Active Substance: ALBUTEROL SULFATE
     Indication: WHEEZING
     Dosage: 108 UG, AS NEEDED AS NEEDED (INHALE 2 PUFFS INTO THE LUNGS EVERY 4 HOURS)
     Route: 055
     Dates: start: 20150717
  23. PROVENTIL [Concomitant]
     Active Substance: ALBUTEROL
     Indication: WHEEZING
     Dosage: 2.5 MG, AS NEEDED (EVERY 4 HOURS)
     Route: 055
     Dates: start: 20151109
  24. BENADRYL [Concomitant]
     Active Substance: DIPHENHYDRAMINE HYDROCHLORIDE
     Indication: PRURITUS
     Dosage: 25 MG, AS NEEDED (EVERY 6 HOURS)
     Route: 048
  25. FISH OIL [Concomitant]
     Active Substance: FISH OIL
     Dosage: 1600 MG, 2X/DAY
     Route: 048
  26. ADACEL TDAP [Concomitant]
     Active Substance: TETANUS TOXOID, REDUCED DIPHTHERIA TOXOID AND ACELLULAR PERTUSSIS VACCINE ADSORBED, TDAP
     Dosage: UNK, SINGLE 5-2-15.5 LF-MCG/0.5
     Route: 030
     Dates: start: 20160218

REACTIONS (4)
  - Blood albumin abnormal [Unknown]
  - Oral pain [Unknown]
  - Diarrhoea [Recovered/Resolved]
  - Weight fluctuation [Unknown]

NARRATIVE: CASE EVENT DATE: 201603
